FAERS Safety Report 18173262 (Version 1)
Quarter: 2020Q3

REPORT INFORMATION
  Report Type: Spontaneous
  Country: GB (occurrence: GB)
  Receive Date: 20200819
  Receipt Date: 20200819
  Transmission Date: 20201103
  Serious: Yes (Other)
  Sender: FDA-Public Use
  Company Number: GB-ASCEND THERAPEUTICS US, LLC-2088820

PATIENT
  Age: 41 Year
  Sex: Female
  Weight: 88.9 kg

DRUGS (4)
  1. OESTRODOSE (ESTRADIOL)?INDICATION FOR USE: PREMENSTRUAL DYSPHORIC DISO [Suspect]
     Active Substance: ESTRADIOL
     Route: 062
     Dates: start: 20200724, end: 20200802
  2. ESTROGEL [Suspect]
     Active Substance: ESTRADIOL
  3. ESTROGEL [Concomitant]
     Active Substance: ESTRADIOL
  4. ESTROGEL [Suspect]
     Active Substance: ESTRADIOL
     Indication: PREMENSTRUAL DYSPHORIC DISORDER
     Route: 062
     Dates: start: 20200724, end: 20200802

REACTIONS (8)
  - Depression suicidal [Recovering/Resolving]
  - Vomiting [Not Recovered/Not Resolved]
  - Nausea [Not Recovered/Not Resolved]
  - Suicidal ideation [Unknown]
  - Insomnia [Not Recovered/Not Resolved]
  - Product substitution issue [Unknown]
  - Anxiety [Recovering/Resolving]
  - Dizziness [Unknown]

NARRATIVE: CASE EVENT DATE: 20200725
